FAERS Safety Report 15014727 (Version 1)
Quarter: 2018Q2

REPORT INFORMATION
  Report Type: Spontaneous
  Country: ES (occurrence: ES)
  Receive Date: 20180615
  Receipt Date: 20180615
  Transmission Date: 20180711
  Serious: Yes (Other)
  Sender: FDA-Public Use
  Company Number: ES-TEVA-2018-ES-907628

PATIENT
  Age: 50 Year
  Sex: Female
  Weight: 65 kg

DRUGS (2)
  1. BUDESONIDA (2291A) [Suspect]
     Active Substance: BUDESONIDE
     Indication: PRODUCT USED FOR UNKNOWN INDICATION
     Route: 055
     Dates: start: 20180201
  2. VINCIGRIP CAPSULAS DURAS , 12 C?PSULAS [Interacting]
     Active Substance: BENZYDAMINE\BROMHEXINE HYDROCHLORIDE\GUAIFENESIN\ SULFAMETHOXAZOLE\TRIMETHOPRIM
     Indication: NASAL CONGESTION
     Route: 048
     Dates: start: 20180301, end: 20180301

REACTIONS (4)
  - Drug interaction [Unknown]
  - Dry mouth [Unknown]
  - Dry eye [Unknown]
  - Eyelid oedema [Unknown]

NARRATIVE: CASE EVENT DATE: 20180301
